FAERS Safety Report 18624357 (Version 11)
Quarter: 2021Q4

REPORT INFORMATION
  Report Type: Report from Study
  Country: CA (occurrence: CA)
  Receive Date: 20201216
  Receipt Date: 20211116
  Transmission Date: 20220303
  Serious: Yes (Hospitalization, Other)
  Sender: FDA-Public Use
  Company Number: CA-SAMSUNG BIOEPIS-SB-2020-14937

PATIENT
  Age: 41 Year
  Sex: Female
  Weight: 83.1 kg

DRUGS (8)
  1. RENFLEXIS [Suspect]
     Active Substance: INFLIXIMAB-ABDA
     Indication: Crohn^s disease
     Route: 042
     Dates: start: 20190502
  2. RENFLEXIS [Suspect]
     Active Substance: INFLIXIMAB-ABDA
     Dosage: ADMINISTERED AS EVERY EIGHT WEEKS TILL 2 JUN
     Route: 042
  3. RENFLEXIS [Suspect]
     Active Substance: INFLIXIMAB-ABDA
     Route: 042
     Dates: start: 20200630, end: 20200727
  4. RENFLEXIS [Suspect]
     Active Substance: INFLIXIMAB-ABDA
     Dosage: UNKNOWN
     Route: 042
     Dates: start: 20200825
  5. RENFLEXIS [Suspect]
     Active Substance: INFLIXIMAB-ABDA
     Route: 065
  6. RENFLEXIS [Suspect]
     Active Substance: INFLIXIMAB-ABDA
     Dosage: VIAL
     Route: 065
  7. CIPRALEX [Concomitant]
     Active Substance: ESCITALOPRAM OXALATE
     Indication: Anxiety
     Dosage: UNKNOWN
     Route: 065
  8. VYVANSE [Concomitant]
     Active Substance: LISDEXAMFETAMINE DIMESYLATE
     Indication: Attention deficit hyperactivity disorder
     Dosage: UNKNOWN
     Route: 065

REACTIONS (19)
  - Hernia [Unknown]
  - Psoas abscess [Unknown]
  - Thrombosis [Not Recovered/Not Resolved]
  - Vomiting [Unknown]
  - Hospitalisation [Not Recovered/Not Resolved]
  - Abdominal pain [Unknown]
  - Gait inability [Unknown]
  - Pain in extremity [Unknown]
  - Inflammatory bowel disease [Unknown]
  - Pyoderma gangrenosum [Recovering/Resolving]
  - Crohn^s disease [Recovering/Resolving]
  - Erythema nodosum [Not Recovered/Not Resolved]
  - Weight increased [Unknown]
  - Weight decreased [Unknown]
  - Mobility decreased [Unknown]
  - Pyrexia [Unknown]
  - Sitting disability [Unknown]
  - Off label use [Unknown]
  - Product use issue [Unknown]

NARRATIVE: CASE EVENT DATE: 20200301
